FAERS Safety Report 5711154-9 (Version None)
Quarter: 2008Q2

REPORT INFORMATION
  Report Type: 
  Country: None (occurrence: None)
  Receive Date: 20080421
  Receipt Date: 20080411
  Transmission Date: 20081010
  Serious: Yes (Hospitalization, Disabling)
  Sender: FDA-Public Use
  Company Number: DE-BAYER-200813595GPV

PATIENT
  Age: 41 Year
  Sex: Male

DRUGS (1)
  1. AVELOX [Suspect]
     Indication: SINOBRONCHITIS
     Route: 048
     Dates: start: 20080208, end: 20080211

REACTIONS (1)
  - CEREBROVASCULAR ACCIDENT [None]
